FAERS Safety Report 10269141 (Version 2)
Quarter: 2014Q2

REPORT INFORMATION
  Report Type: Report from Study
  Country: JP (occurrence: JP)
  Receive Date: 20140630
  Receipt Date: 20140630
  Transmission Date: 20141212
  Serious: Yes (Hospitalization)
  Sender: FDA-Public Use
  Company Number: JP-GILEAD-2014-0106790

PATIENT
  Age: 64 Year
  Sex: Female
  Weight: 44 kg

DRUGS (15)
  1. AMBRISENTAN [Suspect]
     Indication: PULMONARY ARTERIAL HYPERTENSION
     Dosage: 5 MG, QD
     Route: 048
     Dates: start: 20110216, end: 20110315
  2. AMBRISENTAN [Suspect]
     Dosage: 10 MG, QD
     Route: 048
     Dates: start: 20110316, end: 20110726
  3. AMBRISENTAN [Suspect]
     Dosage: 2.5 MG, QD
     Route: 048
     Dates: start: 20110727, end: 20110927
  4. AMBRISENTAN [Suspect]
     Dosage: 1.25 MG, QD
     Route: 048
     Dates: start: 20110928, end: 20120207
  5. AMBRISENTAN [Suspect]
     Dosage: 10 MG, QD
     Route: 048
     Dates: start: 20120208
  6. FLOLAN [Suspect]
     Indication: PULMONARY ARTERIAL HYPERTENSION
     Dosage: UNK
     Route: 042
     Dates: start: 20100816
  7. ADCIRCA [Concomitant]
     Indication: PULMONARY ARTERIAL HYPERTENSION
     Route: 048
  8. PREDNISOLONE [Concomitant]
     Route: 048
  9. NEORAL [Concomitant]
     Route: 048
  10. SELBEX [Concomitant]
     Route: 048
  11. PARIET [Concomitant]
     Route: 048
  12. LOXONIN [Concomitant]
     Route: 048
  13. FUROSEMIDE [Concomitant]
     Route: 048
  14. SILECE [Concomitant]
     Route: 048
  15. ASPARA POTASSIUM [Concomitant]
     Route: 048

REACTIONS (3)
  - Thrombocytopenia [Not Recovered/Not Resolved]
  - Epistaxis [Recovered/Resolved]
  - Hepatic function abnormal [Recovered/Resolved]
